FAERS Safety Report 18604428 (Version 2)
Quarter: 2020Q4

REPORT INFORMATION
  Report Type: Spontaneous
  Country: JP (occurrence: JP)
  Receive Date: 20201211
  Receipt Date: 20201216
  Transmission Date: 20210114
  Serious: Yes (Other)
  Sender: FDA-Public Use
  Company Number: JP-HQ SPECIALTY-JP-2020INT000150

PATIENT
  Age: 15 Year
  Sex: Female

DRUGS (1)
  1. DEXMEDETOMIDINE HYDROCHLORIDE. [Suspect]
     Active Substance: DEXMEDETOMIDINE HYDROCHLORIDE
     Indication: RESTLESSNESS
     Dosage: 0.4-0.7 UG/KG/H, STOPPED
     Route: 065

REACTIONS (2)
  - Product administered to patient of inappropriate age [Unknown]
  - Diabetes insipidus [Recovering/Resolving]
